FAERS Safety Report 5087573-3 (Version None)
Quarter: 2006Q3

REPORT INFORMATION
  Report Type: 
  Country: None (occurrence: None)
  Receive Date: 20060824
  Receipt Date: 20060623
  Transmission Date: 20061208
  Serious: Yes (Death, Hospitalization)
  Sender: FDA-Public Use
  Company Number: PHBS2006JP09587

PATIENT
  Age: 35 Year
  Sex: Female

DRUGS (11)
  1. METHOTREXATE [Concomitant]
     Indication: ALLOGENIC BONE MARROW TRANSPLANTATION THERAPY
     Dosage: 10 MG/M2/D
     Route: 042
  2. METHOTREXATE [Concomitant]
     Dosage: 7 MG/M2/D
     Route: 042
  3. ACYCLOVIR [Concomitant]
  4. MICAFUNGIN SODIUM [Concomitant]
  5. MEROPENEM [Concomitant]
  6. VANCOMYCIN [Concomitant]
  7. NEUPOGEN [Concomitant]
  8. MYCOPHENOLATE MOFETIL [Concomitant]
  9. SANDIMMUNE [Suspect]
     Indication: ALLOGENIC BONE MARROW TRANSPLANTATION THERAPY
     Dosage: 3 MG/KG/D
     Route: 042
     Dates: start: 20030708
  10. SANDIMMUNE [Suspect]
     Dosage: 0.2 MG/KG/D
     Route: 042
     Dates: end: 20031027
  11. PROGRAF [Suspect]
     Indication: ALLOGENIC BONE MARROW TRANSPLANTATION THERAPY
     Dosage: 0.02 MG/KG/D
     Dates: start: 20030619, end: 20030706

REACTIONS (10)
  - C-REACTIVE PROTEIN INCREASED [None]
  - DISORIENTATION [None]
  - FATIGUE [None]
  - HYPERAESTHESIA [None]
  - HYPERKALAEMIA [None]
  - NEURALGIA [None]
  - PARAESTHESIA [None]
  - PNEUMONIA BACTERIAL [None]
  - PRURITUS [None]
  - TRANSAMINASES INCREASED [None]
